FAERS Safety Report 8134455-6 (Version None)
Quarter: 2012Q1

REPORT INFORMATION
  Report Type: 
  Country: None (occurrence: None)
  Receive Date: 20120214
  Receipt Date: 20120214
  Transmission Date: 20120608
  Serious: Yes (Hospitalization, Other)
  Sender: FDA-Public Use
  Company Number: None

PATIENT
  Age: 71 Year
  Sex: Male
  Weight: 83.6 kg

DRUGS (1)
  1. DABIGATRAN [Suspect]
     Indication: ATRIAL FIBRILLATION
     Dosage: 150 MG
     Route: 048
     Dates: start: 20120209, end: 20120210

REACTIONS (5)
  - HYPERHIDROSIS [None]
  - HAEMOGLOBIN DECREASED [None]
  - OESOPHAGOGASTRODUODENOSCOPY [None]
  - HAEMATOCRIT DECREASED [None]
  - BLOOD PRESSURE DECREASED [None]
